FAERS Safety Report 8885932 (Version 1)
Quarter: 2012Q4

REPORT INFORMATION
  Report Type: Report from Study
  Country: SK (occurrence: SK)
  Receive Date: 20121105
  Receipt Date: 20121105
  Transmission Date: 20130627
  Serious: Yes (Death, Hospitalization)
  Sender: FDA-Public Use
  Company Number: PHHO2011SK03856

PATIENT
  Age: 86 Year
  Sex: Female

DRUGS (4)
  1. ALISKIREN [Suspect]
     Indication: CARDIAC FAILURE ACUTE
     Route: 048
     Dates: start: 20100429, end: 20110205
  2. FURON [Concomitant]
     Indication: CARDIAC FAILURE
  3. TALLITON [Concomitant]
     Indication: CARDIAC FAILURE
  4. DIGOXIN [Concomitant]
     Indication: CARDIAC FAILURE

REACTIONS (12)
  - Dehydration [Not Recovered/Not Resolved]
  - Fall [Unknown]
  - Pulmonary embolism [Fatal]
  - Hip fracture [Not Recovered/Not Resolved]
  - Back injury [Not Recovered/Not Resolved]
  - Chest injury [Not Recovered/Not Resolved]
  - Pelvic fracture [Not Recovered/Not Resolved]
  - Urinary tract infection [Recovered/Resolved]
  - Hypophagia [Unknown]
  - Hypotension [Not Recovered/Not Resolved]
  - Mineral deficiency [Not Recovered/Not Resolved]
  - Anaemia [Not Recovered/Not Resolved]
